FAERS Safety Report 14739147 (Version 1)
Quarter: 2018Q2

REPORT INFORMATION
  Report Type: Spontaneous
  Country: US (occurrence: US)
  Receive Date: 20180410
  Receipt Date: 20180410
  Transmission Date: 20180711
  Serious: No
  Sender: FDA-Public Use
  Company Number: US-BEH-2018089418

PATIENT
  Sex: Female
  Weight: 62.13 kg

DRUGS (20)
  1. CILOSTAZOL. [Concomitant]
     Active Substance: CILOSTAZOL
  2. COREG [Concomitant]
     Active Substance: CARVEDILOL
  3. CYCLOBENZAPRINE. [Concomitant]
     Active Substance: CYCLOBENZAPRINE
  4. HIZENTRA [Suspect]
     Active Substance: HUMAN IMMUNOGLOBULIN G
     Indication: IMMUNODEFICIENCY COMMON VARIABLE
     Dosage: 12 G, QW
     Route: 058
     Dates: start: 20130114
  5. ACETAMINOPHEN. [Concomitant]
     Active Substance: ACETAMINOPHEN
  6. LEVOTHYROXINE. [Concomitant]
     Active Substance: LEVOTHYROXINE
  7. ATENOLOL. [Concomitant]
     Active Substance: ATENOLOL
  8. FLECAINIDE [Concomitant]
     Active Substance: FLECAINIDE
  9. LIPITOR [Concomitant]
     Active Substance: ATORVASTATIN CALCIUM
  10. ZOLPIDEM [Concomitant]
     Active Substance: ZOLPIDEM\ZOLPIDEM TARTRATE
  11. DILTIA [Concomitant]
  12. LISINOPRIL. [Concomitant]
     Active Substance: LISINOPRIL
  13. DIPHENHYDRAMINE. [Concomitant]
     Active Substance: DIPHENHYDRAMINE
  14. LIDOCAINE. [Concomitant]
     Active Substance: LIDOCAINE
  15. HIZENTRA [Suspect]
     Active Substance: HUMAN IMMUNOGLOBULIN G
     Dosage: UNK
     Route: 058
  16. DIGOXIN. [Concomitant]
     Active Substance: DIGOXIN
  17. CARVEDILOL. [Concomitant]
     Active Substance: CARVEDILOL
  18. EPINEPHRINE. [Concomitant]
     Active Substance: EPINEPHRINE
  19. TRIAMTERENE. [Concomitant]
     Active Substance: TRIAMTERENE
  20. PLAVIX [Concomitant]
     Active Substance: CLOPIDOGREL BISULFATE

REACTIONS (1)
  - Poor peripheral circulation [Unknown]
